FAERS Safety Report 6902034-1 (Version None)
Quarter: 2010Q3

REPORT INFORMATION
  Report Type: 
  Country: None (occurrence: None)
  Receive Date: 20100803
  Receipt Date: 20080410
  Transmission Date: 20110219
  Serious: No
  Sender: FDA-Public Use
  Company Number: US-PFIZER INC-2008032807

PATIENT
  Sex: Female
  Weight: 64.9 kg

DRUGS (2)
  1. LYRICA [Suspect]
     Indication: PERONEAL MUSCULAR ATROPHY
     Dates: start: 20070101
  2. LEXAPRO [Concomitant]

REACTIONS (1)
  - WEIGHT INCREASED [None]
